FAERS Safety Report 7169790-1 (Version None)
Quarter: 2010Q4

REPORT INFORMATION
  Report Type: 
  Country: None (occurrence: None)
  Receive Date: 20101217
  Receipt Date: 20101110
  Transmission Date: 20110411
  Serious: No
  Sender: FDA-Public Use
  Company Number: A0880667A

PATIENT
  Age: 59 Year
  Sex: Female

DRUGS (7)
  1. SORIATANE [Suspect]
     Indication: PSORIASIS
     Dosage: 25MG PER DAY
     Route: 048
     Dates: start: 20100701, end: 20100101
  2. METOPROLOL [Concomitant]
  3. NORTRIPTYLINE [Concomitant]
  4. FISH OIL [Concomitant]
  5. GABAPENTIN [Concomitant]
  6. ZYRTEC [Concomitant]
  7. ASPIRIN [Concomitant]

REACTIONS (3)
  - ALOPECIA [None]
  - MENSTRUAL DISORDER [None]
  - MUSCLE SPASMS [None]
